FAERS Safety Report 17049809 (Version 1)
Quarter: 2019Q4

REPORT INFORMATION
  Report Type: Spontaneous
  Country: US (occurrence: US)
  Receive Date: 20191119
  Receipt Date: 20191119
  Transmission Date: 20200122
  Serious: Yes (Other)
  Sender: FDA-Public Use
  Company Number: US-BAYER-2019-203449

PATIENT
  Age: 50 Year
  Sex: Female

DRUGS (2)
  1. ASPIRIN (PAIN AND FEVER) [Suspect]
     Active Substance: ASPIRIN
     Indication: RASH
     Dosage: 200 MG
     Route: 048
     Dates: start: 20191108, end: 20191108
  2. BAYER ASPIRIN 500 MG [Concomitant]
     Active Substance: ASPIRIN
     Dosage: UNK

REACTIONS (2)
  - Product use in unapproved indication [None]
  - Rash [Recovered/Resolved]

NARRATIVE: CASE EVENT DATE: 20191108
